FAERS Safety Report 8260467-8 (Version None)
Quarter: 2012Q2

REPORT INFORMATION
  Report Type: 
  Country: None (occurrence: None)
  Receive Date: 20120404
  Receipt Date: 20120330
  Transmission Date: 20120825
  Serious: Yes (Hospitalization, Other)
  Sender: FDA-Public Use
  Company Number: FR-MERCK-1107FRA00052

PATIENT
  Age: 67 Year
  Sex: Male
  Weight: 99 kg

DRUGS (6)
  1. METFORMIN PAMOATE [Concomitant]
     Indication: TYPE 2 DIABETES MELLITUS
     Route: 048
     Dates: start: 20101104, end: 20110301
  2. JANUMET [Suspect]
     Indication: TYPE 2 DIABETES MELLITUS
     Route: 048
     Dates: start: 20110101, end: 20110301
  3. EPROSARTAN MESYLATE [Concomitant]
     Indication: HYPERTENSION
     Route: 048
     Dates: start: 20020831
  4. JANUVIA [Concomitant]
     Route: 048
     Dates: start: 20110301
  5. ZOCOR [Concomitant]
     Indication: DYSLIPIDAEMIA
     Route: 048
     Dates: start: 20030218
  6. JANUVIA [Concomitant]
     Indication: TYPE 2 DIABETES MELLITUS
     Route: 048
     Dates: start: 20101104, end: 20110101

REACTIONS (2)
  - HYPOGLYCAEMIA [None]
  - COLON CANCER [None]
